FAERS Safety Report 25191103 (Version 3)
Quarter: 2025Q2

REPORT INFORMATION
  Report Type: Report from Study
  Country: US (occurrence: US)
  Receive Date: 20250411
  Receipt Date: 20250519
  Transmission Date: 20250716
  Serious: Yes (Death)
  Sender: BAUSCH AND LOMB
  Company Number: US-BAUSCH-BL-2025-004800

PATIENT
  Age: 68 Year
  Sex: Female

DRUGS (1)
  1. XIFAXAN [Suspect]
     Active Substance: RIFAXIMIN
     Indication: Hepatic cirrhosis
     Route: 065

REACTIONS (1)
  - Fall [Fatal]

NARRATIVE: CASE EVENT DATE: 20250314
